FAERS Safety Report 25853021 (Version 2)
Quarter: 2025Q4

REPORT INFORMATION
  Report Type: Report from Study
  Country: RS (occurrence: RS)
  Receive Date: 20250926
  Receipt Date: 20251010
  Transmission Date: 20260119
  Serious: Yes (Other)
  Sender: EMD SERONO INC
  Company Number: RS-Merck Healthcare KGaA-2025047972

PATIENT
  Age: 27 Year
  Sex: Female

DRUGS (2)
  1. MAVENCLAD [Suspect]
     Active Substance: CLADRIBINE
     Indication: Multiple sclerosis
     Dosage: YEAR ONE MONTH ONE THERAPY
     Dates: start: 20250611, end: 20250615
  2. MAVENCLAD [Suspect]
     Active Substance: CLADRIBINE
     Dosage: YEAR ONE MONTH TWO THERAPY.
     Dates: start: 20250711, end: 20250715

REACTIONS (4)
  - Viral infection [Unknown]
  - Body temperature increased [Unknown]
  - Lymphocyte count decreased [Unknown]
  - Neutrophil percentage increased [Unknown]

NARRATIVE: CASE EVENT DATE: 20250912
